FAERS Safety Report 6475688-4 (Version None)
Quarter: 2009Q4

REPORT INFORMATION
  Report Type: 
  Country: None (occurrence: None)
  Receive Date: 20091204
  Receipt Date: 20091130
  Transmission Date: 20100525
  Serious: Yes (Other)
  Sender: FDA-Public Use
  Company Number: ES-TEVA-214657ISR

PATIENT
  Age: 50 Year
  Sex: Female

DRUGS (5)
  1. IBUPROFEN [Suspect]
  2. CLORAZEPATE DIPOTASSIUM [Suspect]
     Dosage: UP TO 40 MG/DAY
  3. PARACETAMOL [Suspect]
     Indication: HEADACHE
     Dosage: UP TO 2500 MG/DAY
  4. ALPRAZOLAM [Suspect]
  5. CLONAZEPAM [Suspect]

REACTIONS (1)
  - DRUG ABUSE [None]
